FAERS Safety Report 7930077-8 (Version None)
Quarter: 2011Q4

REPORT INFORMATION
  Report Type: 
  Country: None (occurrence: None)
  Receive Date: 20111118
  Receipt Date: 20111118
  Transmission Date: 20120403
  Serious: No
  Sender: FDA-Public Use
  Company Number: None

PATIENT
  Sex: Female
  Weight: 90 kg

DRUGS (3)
  1. VICTRELIS [Suspect]
     Indication: COMA
     Dosage: 200MG X 4X300MG TID PO
     Route: 048
     Dates: start: 20111108
  2. RIBAPAK PFSI/ 1200 MG/DAY COMPLIANCE PAK KADMON PHARMACEUTICALS [Concomitant]
     Dosage: 180MCG/0.5 ML Q WK. SC
     Route: 058
  3. PEGASYS [Suspect]
     Indication: COMA
     Dosage: 180MCG/0.5 ML Q WK. SC
     Route: 058
     Dates: start: 20111020

REACTIONS (1)
  - HYPOAESTHESIA [None]
